FAERS Safety Report 8767920 (Version 4)
Quarter: 2012Q4

REPORT INFORMATION
  Report Type: 
  Country: GB (occurrence: GB)
  Receive Date: 20120905
  Receipt Date: 20121220
  Transmission Date: 20130627
  Serious: Yes (Other)
  Sender: FDA-Public Use
  Company Number: PHHY2012GB075266

PATIENT
  Age: 15 Year
  Sex: Female

DRUGS (4)
  1. CETIRIZINE [Suspect]
     Indication: SEASONAL ALLERGY
     Route: 048
  2. LAMICTAL [Suspect]
     Indication: BIPOLAR DISORDER
     Dosage: 50 mg, TID
     Route: 048
  3. ABILIFY [Suspect]
     Indication: BIPOLAR DISORDER
  4. NEXPLANON [Suspect]
     Indication: CONTRACEPTION

REACTIONS (5)
  - Abortion spontaneous [Unknown]
  - Unintended pregnancy [Unknown]
  - Metrorrhagia [Unknown]
  - Drug interaction [Unknown]
  - Maternal exposure during pregnancy [Unknown]
